FAERS Safety Report 4370428-7 (Version None)
Quarter: 2004Q2

REPORT INFORMATION
  Report Type: 
  Country: None (occurrence: None)
  Receive Date: 20040603
  Receipt Date: 20040209
  Transmission Date: 20050107
  Serious: No
  Sender: FDA-Public Use
  Company Number: US-BRISTOL-MYERS SQUIBB COMPANY-12500443

PATIENT
  Age: 50 Year
  Sex: Female
  Weight: 69 kg

DRUGS (5)
  1. ABILIFY [Suspect]
     Indication: BIPOLAR DISORDER
     Dosage: 15 MG/DAY DEC-2003; 30 MG/DAY JAN-2004 BUT SOMETIMES SHE TOOK 20 MG
     Dates: start: 20031201
  2. SINGULAIR [Concomitant]
  3. PAXIL [Concomitant]
  4. KLONOPIN [Concomitant]
  5. MELATONIN [Concomitant]

REACTIONS (3)
  - FATIGUE [None]
  - NAUSEA [None]
  - VOMITING [None]
